FAERS Safety Report 8049377-9 (Version None)
Quarter: 2012Q1

REPORT INFORMATION
  Report Type: 
  Country: None (occurrence: None)
  Receive Date: 20120117
  Receipt Date: 20120111
  Transmission Date: 20120608
  Serious: Yes (Other)
  Sender: FDA-Public Use
  Company Number: FR-GILEAD-2011-0045945

PATIENT
  Sex: Male

DRUGS (6)
  1. TRUVADA [Suspect]
     Indication: HIV INFECTION
     Dosage: 1 DF, QD
     Route: 048
     Dates: start: 20110708, end: 20110920
  2. PREZISTA [Suspect]
     Indication: HIV INFECTION
     Dosage: 800 MG, UNK
     Route: 048
     Dates: start: 20110809, end: 20110920
  3. COMBIVIR [Concomitant]
     Dosage: UNK
  4. REYATAZ [Concomitant]
     Indication: HIV INFECTION
     Dosage: 300 MG, UNK
     Route: 048
     Dates: end: 20110809
  5. NORVIR [Suspect]
     Indication: HIV INFECTION
     Dosage: 1 UNK, UNK
     Route: 048
     Dates: end: 20110920
  6. INVIRASE [Concomitant]
     Dosage: UNK, TID

REACTIONS (2)
  - TENOSYNOVITIS [None]
  - ROTATOR CUFF SYNDROME [None]
